FAERS Safety Report 5160547-X (Version None)
Quarter: 2006Q4

REPORT INFORMATION
  Report Type: 
  Country: None (occurrence: None)
  Receive Date: 20061121
  Receipt Date: 20061113
  Transmission Date: 20070319
  Serious: Yes (Hospitalization)
  Sender: FDA-Public Use
  Company Number: RENA-12013

PATIENT
  Age: 77 Year
  Sex: Male

DRUGS (1)
  1. RENAGEL [Suspect]
     Indication: HYPERPHOSPHATAEMIA
     Dosage: 2 TAB TID PO
     Route: 048
     Dates: start: 20060601

REACTIONS (2)
  - FOREIGN BODY TRAUMA [None]
  - VOMITING [None]
